FAERS Safety Report 4795457-0 (Version None)
Quarter: 2005Q4

REPORT INFORMATION
  Report Type: 
  Country: None (occurrence: None)
  Receive Date: 20051012
  Receipt Date: 20050930
  Transmission Date: 20060501
  Serious: Yes (Other)
  Sender: FDA-Public Use
  Company Number: 2005AP05150

PATIENT
  Age: 65 Year
  Sex: Male

DRUGS (2)
  1. COSUDEX [Suspect]
     Indication: PROSTATE CANCER
     Route: 048
     Dates: start: 20050601
  2. LUCRIN [Suspect]
     Indication: PROSTATE CANCER
     Dates: start: 20050601

REACTIONS (1)
  - NEUTROPENIA [None]
